FAERS Safety Report 9919818 (Version 2)
Quarter: 2014Q2

REPORT INFORMATION
  Report Type: Spontaneous
  Country: US (occurrence: US)
  Receive Date: 20140224
  Receipt Date: 20140416
  Transmission Date: 20141212
  Serious: No
  Sender: FDA-Public Use
  Company Number: US-PFIZER INC-2014052575

PATIENT
  Age: 70 Year
  Sex: Female
  Weight: 88.44 kg

DRUGS (2)
  1. ADVIL [Suspect]
     Indication: ARTHRALGIA
     Dosage: UNK, TWO TIMES A DAY
     Route: 048
     Dates: end: 2013
  2. ADVIL [Suspect]
     Indication: BACK PAIN

REACTIONS (1)
  - Dysgeusia [Unknown]
